FAERS Safety Report 12951916 (Version 1)
Quarter: 2016Q4

REPORT INFORMATION
  Report Type: Spontaneous
  Country: US (occurrence: US)
  Receive Date: 20161117
  Receipt Date: 20161117
  Transmission Date: 20170207
  Serious: Yes (Hospitalization)
  Sender: FDA-Public Use
  Company Number: US-NOVOPROD-482407

PATIENT
  Age: 32 Year
  Sex: Male
  Weight: 74.83 kg

DRUGS (3)
  1. TOUJEO [Suspect]
     Active Substance: INSULIN GLARGINE
     Indication: TYPE 1 DIABETES MELLITUS
     Dosage: UNKNOWN
     Route: 058
     Dates: start: 201601
  2. TOUJEO [Suspect]
     Active Substance: INSULIN GLARGINE
     Dosage: 28 U, QD
     Route: 058
  3. NOVOLOG [Suspect]
     Active Substance: INSULIN ASPART
     Indication: TYPE 1 DIABETES MELLITUS
     Dosage: 28U QD (8U, 10U AND 10U DAILY)
     Route: 058
     Dates: start: 201601

REACTIONS (2)
  - Blood glucose fluctuation [Not Recovered/Not Resolved]
  - Blood ketone body present [Recovered/Resolved]

NARRATIVE: CASE EVENT DATE: 201602
